FAERS Safety Report 25104125 (Version 1)
Quarter: 2025Q1

REPORT INFORMATION
  Report Type: Spontaneous
  Country: US (occurrence: US)
  Receive Date: 20250321
  Receipt Date: 20250321
  Transmission Date: 20250408
  Serious: Yes (Hospitalization)
  Sender: MYLAN
  Company Number: US-MYLANLABS-2025M1023438

PATIENT
  Sex: Female

DRUGS (36)
  1. ISOTRETINOIN [Suspect]
     Active Substance: ISOTRETINOIN
     Indication: Psoriasis
     Dosage: 30 MILLIGRAM, QD
     Dates: start: 202004
  2. ISOTRETINOIN [Suspect]
     Active Substance: ISOTRETINOIN
     Dosage: 30 MILLIGRAM, QD
     Route: 065
     Dates: start: 202004
  3. ISOTRETINOIN [Suspect]
     Active Substance: ISOTRETINOIN
     Dosage: 30 MILLIGRAM, QD
     Route: 065
     Dates: start: 202004
  4. ISOTRETINOIN [Suspect]
     Active Substance: ISOTRETINOIN
     Dosage: 30 MILLIGRAM, QD
     Dates: start: 202004
  5. METHOTREXATE (METHOTREXATE SODIUM) [Suspect]
     Active Substance: METHOTREXATE SODIUM
     Indication: Chronic recurrent multifocal osteomyelitis
     Dosage: 7.5 MILLIGRAM, QW
  6. METHOTREXATE (METHOTREXATE SODIUM) [Suspect]
     Active Substance: METHOTREXATE SODIUM
     Indication: Colitis ulcerative
     Dosage: 7.5 MILLIGRAM, QW
     Route: 048
  7. METHOTREXATE (METHOTREXATE SODIUM) [Suspect]
     Active Substance: METHOTREXATE SODIUM
     Dosage: 7.5 MILLIGRAM, QW
     Route: 048
  8. METHOTREXATE (METHOTREXATE SODIUM) [Suspect]
     Active Substance: METHOTREXATE SODIUM
     Dosage: 7.5 MILLIGRAM, QW
  9. CLOBETASOL [Suspect]
     Active Substance: CLOBETASOL
     Indication: Psoriasis
     Dosage: UNK, BID
     Dates: start: 202004
  10. CLOBETASOL [Suspect]
     Active Substance: CLOBETASOL
     Dosage: UNK, BID
     Route: 065
     Dates: start: 202004
  11. CLOBETASOL [Suspect]
     Active Substance: CLOBETASOL
     Dosage: UNK, BID
     Route: 065
     Dates: start: 202004
  12. CLOBETASOL [Suspect]
     Active Substance: CLOBETASOL
     Dosage: UNK, BID
     Dates: start: 202004
  13. INFLIXIMAB [Suspect]
     Active Substance: INFLIXIMAB
     Indication: Chronic recurrent multifocal osteomyelitis
  14. INFLIXIMAB [Suspect]
     Active Substance: INFLIXIMAB
     Indication: Colitis ulcerative
     Route: 042
  15. INFLIXIMAB [Suspect]
     Active Substance: INFLIXIMAB
     Indication: Psoriasis
     Route: 042
  16. INFLIXIMAB [Suspect]
     Active Substance: INFLIXIMAB
  17. AZATHIOPRINE [Suspect]
     Active Substance: AZATHIOPRINE
     Indication: Chronic recurrent multifocal osteomyelitis
     Dosage: 1 MILLIGRAM/KILOGRAM, QD
  18. AZATHIOPRINE [Suspect]
     Active Substance: AZATHIOPRINE
     Indication: Colitis ulcerative
     Dosage: 1 MILLIGRAM/KILOGRAM, QD
     Route: 065
  19. AZATHIOPRINE [Suspect]
     Active Substance: AZATHIOPRINE
     Indication: Psoriasis
     Dosage: 1 MILLIGRAM/KILOGRAM, QD
     Route: 065
  20. AZATHIOPRINE [Suspect]
     Active Substance: AZATHIOPRINE
     Dosage: 1 MILLIGRAM/KILOGRAM, QD
  21. ADALIMUMAB [Concomitant]
     Active Substance: ADALIMUMAB
     Indication: Chronic recurrent multifocal osteomyelitis
     Dosage: 40 MILLIGRAM, BIWEEKLY
  22. ADALIMUMAB [Concomitant]
     Active Substance: ADALIMUMAB
     Indication: Colitis ulcerative
     Dosage: 40 MILLIGRAM, BIWEEKLY
     Route: 058
  23. ADALIMUMAB [Concomitant]
     Active Substance: ADALIMUMAB
     Dosage: 40 MILLIGRAM, BIWEEKLY
     Route: 058
  24. ADALIMUMAB [Concomitant]
     Active Substance: ADALIMUMAB
     Dosage: 40 MILLIGRAM, BIWEEKLY
  25. APREMILAST [Concomitant]
     Active Substance: APREMILAST
     Indication: Psoriasis
  26. APREMILAST [Concomitant]
     Active Substance: APREMILAST
     Route: 065
  27. APREMILAST [Concomitant]
     Active Substance: APREMILAST
     Route: 065
  28. APREMILAST [Concomitant]
     Active Substance: APREMILAST
  29. APREMILAST [Concomitant]
     Active Substance: APREMILAST
     Dosage: 30 MILLIGRAM, BID
     Dates: start: 2020
  30. APREMILAST [Concomitant]
     Active Substance: APREMILAST
     Dosage: 30 MILLIGRAM, BID
     Route: 065
     Dates: start: 2020
  31. APREMILAST [Concomitant]
     Active Substance: APREMILAST
     Dosage: 30 MILLIGRAM, BID
     Dates: start: 2020
  32. APREMILAST [Concomitant]
     Active Substance: APREMILAST
     Dosage: 30 MILLIGRAM, BID
     Route: 065
     Dates: start: 2020
  33. APREMILAST [Concomitant]
     Active Substance: APREMILAST
     Route: 065
  34. APREMILAST [Concomitant]
     Active Substance: APREMILAST
     Route: 065
  35. APREMILAST [Concomitant]
     Active Substance: APREMILAST
  36. APREMILAST [Concomitant]
     Active Substance: APREMILAST

REACTIONS (3)
  - Drug ineffective [Unknown]
  - Off label use [Unknown]
  - Hypertransaminasaemia [Unknown]
